FAERS Safety Report 5630325-3 (Version None)
Quarter: 2008Q1

REPORT INFORMATION
  Report Type: 
  Country: None (occurrence: None)
  Receive Date: 20080213
  Receipt Date: 20080128
  Transmission Date: 20080703
  Serious: Yes (Life-Threatening, Other)
  Sender: FDA-Public Use
  Company Number: VER_00098_2008

PATIENT
  Sex: Female

DRUGS (1)
  1. EPINEPHRINE [Suspect]
     Indication: ANAPHYLACTIC REACTION
     Dosage: INTRAMUSCULAR/SUBCUTANEOUS
     Route: 030
     Dates: start: 20080101

REACTIONS (3)
  - CONTUSION [None]
  - DEVICE FAILURE [None]
  - MEDICAL DEVICE COMPLICATION [None]
